FAERS Safety Report 5714776-4 (Version None)
Quarter: 2008Q2

REPORT INFORMATION
  Report Type: 
  Country: None (occurrence: None)
  Receive Date: 20080423
  Receipt Date: 20070108
  Transmission Date: 20081010
  Serious: Yes (Death)
  Sender: FDA-Public Use
  Company Number: US-ROCHE-477456

PATIENT
  Sex: Male

DRUGS (3)
  1. CAPECITABINE [Suspect]
     Dosage: FROM DAYS 1-14 PER CYCLE. DOSE AND FREQUENCY AS STATED IN PROTOCOL.
     Route: 048
     Dates: start: 20060915, end: 20061220
  2. BEVACIZUMAB [Suspect]
     Dosage: DOSE AS STATED IN PROTOCOL.  ACTUAL DOSE REPORTED WAS 463 MG ONCE EVERY 3 WEEKS.
     Route: 042
     Dates: start: 20060915, end: 20061208
  3. IRINOTECAN HCL [Suspect]
     Dosage: DOSE AS STATED IN PROTOCOL.  DOSE REPORTED WAS 428 MG EVERY 3 WEEKS.
     Route: 042
     Dates: start: 20060915, end: 20061208

REACTIONS (1)
  - DEATH [None]
